FAERS Safety Report 25012383 (Version 2)
Quarter: 2025Q1

REPORT INFORMATION
  Report Type: Report from Study
  Country: ES (occurrence: ES)
  Receive Date: 20250226
  Receipt Date: 20250315
  Transmission Date: 20250409
  Serious: Yes (Other)
  Sender: AUROBINDO
  Company Number: ES-AUROBINDO-AUR-APL-2025-009477

PATIENT
  Age: 6 Decade
  Sex: Female

DRUGS (7)
  1. LEFLUNOMIDE [Suspect]
     Active Substance: LEFLUNOMIDE
     Indication: Sarcoidosis
     Route: 065
  2. INFLIXIMAB [Suspect]
     Active Substance: INFLIXIMAB
     Indication: Sarcoidosis
     Route: 065
  3. HYDROXYCHLOROQUINE [Suspect]
     Active Substance: HYDROXYCHLOROQUINE
     Indication: Sarcoidosis
     Route: 065
  4. MARIBAVIR [Suspect]
     Active Substance: MARIBAVIR
     Indication: Sarcoidosis
     Dosage: 400 MILLIGRAM, TWO TIMES A DAY
     Route: 065
  5. GANCICLOVIR [Concomitant]
     Active Substance: GANCICLOVIR
     Indication: Sarcoidosis
     Dosage: 5 MILLIGRAM/KILOGRAM, TWO TIMES A DAY
     Route: 065
  6. Immunoglobulin [Concomitant]
     Indication: Sarcoidosis
     Route: 042
  7. FOSCARNET [Concomitant]
     Active Substance: FOSCARNET
     Indication: Sarcoidosis
     Dosage: 90 MILLIGRAM/KILOGRAM, TWO TIMES A DAY
     Route: 042

REACTIONS (3)
  - Cytomegalovirus infection [Unknown]
  - Opportunistic infection [Unknown]
  - Haemophagocytic lymphohistiocytosis [Unknown]
